FAERS Safety Report 14212371 (Version 3)
Quarter: 2017Q4

REPORT INFORMATION
  Report Type: Spontaneous
  Country: RO (occurrence: RO)
  Receive Date: 20171122
  Receipt Date: 20171206
  Transmission Date: 20180321
  Serious: Yes (Other)
  Sender: FDA-Public Use
  Company Number: RO-PFIZER INC-2017498571

PATIENT
  Age: 60 Year
  Sex: Female

DRUGS (7)
  1. RILMENIDINE [Suspect]
     Active Substance: RILMENIDINE
     Dosage: 1.5 MG, UNK
  2. AMLODIPINE BESILATE [Concomitant]
     Active Substance: AMLODIPINE BESYLATE
     Indication: HYPERTENSION
     Dosage: 10 MG, UNK
     Dates: start: 2017
  3. LEVOCETIRIZINE [Suspect]
     Active Substance: LEVOCETIRIZINE
     Dosage: 5 MG, DAILY, AS NEEDED
  4. PERINDOPRIL AND INDAPAMIDE [Suspect]
     Active Substance: INDAPAMIDE\PERINDOPRIL
     Dosage: INDAPAMIDE 2.5 MG/PERINDOPRIL 10 MG
  5. METFORMIN [Concomitant]
     Active Substance: METFORMIN HYDROCHLORIDE
     Dosage: 1000 MG, UNK
  6. LACTOSE [Suspect]
     Active Substance: LACTOSE
  7. ALLOPURINOL. [Suspect]
     Active Substance: ALLOPURINOL
     Dosage: 10 MG, UNK

REACTIONS (4)
  - Allergic reaction to excipient [Unknown]
  - Swelling face [None]
  - Angioedema [Unknown]
  - Urticaria [Recovered/Resolved]

NARRATIVE: CASE EVENT DATE: 2017
